FAERS Safety Report 15244077 (Version 1)
Quarter: 2018Q3

REPORT INFORMATION
  Report Type: Report from Study
  Country: None (occurrence: IE)
  Receive Date: 20180806
  Receipt Date: 20180806
  Transmission Date: 20181010
  Serious: Yes (Hospitalization)
  Sender: FDA-Public Use
  Company Number: IE-ABBVIE-18K-229-2442350-00

PATIENT
  Sex: Male

DRUGS (1)
  1. HUMIRA [Suspect]
     Active Substance: ADALIMUMAB
     Indication: ANKYLOSING SPONDYLITIS
     Route: 058
     Dates: start: 20170919, end: 201807

REACTIONS (6)
  - Decubitus ulcer [Recovering/Resolving]
  - Infection [Recovering/Resolving]
  - Pain [Unknown]
  - White blood cell count decreased [Recovering/Resolving]
  - Protein total abnormal [Recovering/Resolving]
  - Immunodeficiency [Recovering/Resolving]

NARRATIVE: CASE EVENT DATE: 2018
